FAERS Safety Report 11158619 (Version 1)
Quarter: 2015Q2

REPORT INFORMATION
  Report Type: Spontaneous
  Country: US (occurrence: US)
  Receive Date: 20150603
  Receipt Date: 20150603
  Transmission Date: 20150821
  Serious: No
  Sender: FDA-Public Use
  Company Number: US-PFIZER INC-2015184699

PATIENT
  Age: 74 Year
  Sex: Male

DRUGS (1)
  1. TORISEL [Suspect]
     Active Substance: TEMSIROLIMUS
     Indication: NEOPLASM MALIGNANT
     Dosage: UNK ( 9 WEEKLY INFUSIONS )

REACTIONS (2)
  - Disease progression [Unknown]
  - Neoplasm malignant [Unknown]
